FAERS Safety Report 5339938-X (Version None)
Quarter: 2007Q2

REPORT INFORMATION
  Report Type: 
  Country: None (occurrence: None)
  Receive Date: 20070529
  Receipt Date: 20070516
  Transmission Date: 20071010
  Serious: Yes (Hospitalization)
  Sender: FDA-Public Use
  Company Number: B0471972A

PATIENT
  Age: 32 Year
  Sex: Female

DRUGS (5)
  1. LITHIUM CARBONATE [Suspect]
     Dosage: 16 GRAM(S)/ SINGLE DOSE/ORAL
     Route: 048
  2. CLORAZEPATE MONOPOTASSIUM [Concomitant]
  3. CLOMIPRAMINE HCL [Concomitant]
  4. LORAZEPAM [Concomitant]
  5. AMITRIPTYLINE HCL [Concomitant]

REACTIONS (3)
  - HAEMODIALYSIS [None]
  - INTENTIONAL OVERDOSE [None]
  - THERAPEUTIC AGENT TOXICITY [None]
